FAERS Safety Report 13076734 (Version 1)
Quarter: 2016Q4

REPORT INFORMATION
  Report Type: Other
  Country: MX (occurrence: MX)
  Receive Date: 20161230
  Receipt Date: 20161230
  Transmission Date: 20170207
  Serious: Yes (Life-Threatening, Hospitalization, Other)
  Sender: FDA-Public Use
  Company Number: MX-SHIRE-MX201613249

PATIENT
  Age: 15 Year
  Sex: Male
  Weight: 33 kg

DRUGS (2)
  1. ELAPRASE [Suspect]
     Active Substance: IDURSULFASE
     Indication: MUCOPOLYSACCHARIDOSIS II
     Dosage: 18 MG (3 VIALS), 1X/WEEK
     Route: 041
     Dates: start: 20141111
  2. NORMAL SALINE [Concomitant]
     Active Substance: SODIUM CHLORIDE
     Indication: MEDICATION DILUTION
     Dosage: 100 ML, 1X/WEEK
     Route: 041
     Dates: start: 20141111

REACTIONS (6)
  - Anaphylactic shock [Unknown]
  - Obstructive airways disorder [Unknown]
  - Pyrexia [Unknown]
  - Rash generalised [Unknown]
  - Urticaria [Unknown]
  - Infusion related reaction [Unknown]

NARRATIVE: CASE EVENT DATE: 201609
